FAERS Safety Report 17982720 (Version 1)
Quarter: 2020Q3

REPORT INFORMATION
  Report Type: Spontaneous
  Country: US (occurrence: US)
  Receive Date: 20200703
  Receipt Date: 20200703
  Transmission Date: 20201103
  Serious: No
  Sender: FDA-Public Use
  Company Number: None

PATIENT
  Age: 62 Year
  Sex: Female
  Weight: 67.5 kg

DRUGS (5)
  1. MONTELUKAST [Suspect]
     Active Substance: MONTELUKAST SODIUM
     Indication: HYPERSENSITIVITY
     Dosage: ?          QUANTITY:1 TABLET(S);?
     Route: 048
     Dates: start: 20200602, end: 20200625
  2. PREDNISONE 2MG [Concomitant]
  3. ESOMEPRAZOLE MAGNESIUM DELAYED RELEASE [Concomitant]
     Active Substance: ESOMEPRAZOLE MAGNESIUM
  4. CETIRIZINE HCI CAPS 10MG [Concomitant]
  5. ESTROGEN?METHYLTESTOTERONE 065/125 MG [Concomitant]

REACTIONS (6)
  - Social avoidant behaviour [None]
  - Depression [None]
  - Anger [None]
  - Aggression [None]
  - Thinking abnormal [None]
  - Hypersomnia [None]

NARRATIVE: CASE EVENT DATE: 20200625
